FAERS Safety Report 7202129-1 (Version None)
Quarter: 2010Q4

REPORT INFORMATION
  Report Type: 
  Country: None (occurrence: None)
  Receive Date: 20101229
  Receipt Date: 20101215
  Transmission Date: 20110411
  Serious: Yes (Other)
  Sender: FDA-Public Use
  Company Number: PHHY2010JP85753

PATIENT
  Sex: Female

DRUGS (1)
  1. EXJADE [Suspect]
     Indication: IRON OVERLOAD
     Dosage: 22 MG/KG, DAILY
     Route: 048

REACTIONS (3)
  - DEHYDRATION [None]
  - GASTROENTERITIS [None]
  - RENAL TUBULAR DISORDER [None]
